FAERS Safety Report 5043818-7 (Version None)
Quarter: 2006Q2

REPORT INFORMATION
  Report Type: 
  Country: None (occurrence: None)
  Receive Date: 20060601
  Receipt Date: 20060222
  Transmission Date: 20061013
  Serious: No
  Sender: FDA-Public Use
  Company Number: US200602004087

PATIENT
  Age: 59 Year
  Sex: Female

DRUGS (7)
  1. HUMALOG [Suspect]
  2. CYMBALTA [Suspect]
     Indication: DIABETIC NEUROPATHY
     Dosage: 30 MG, EACH MORNING
     Dates: start: 20050801, end: 20060201
  3. NEURONTIN [Concomitant]
  4. ASA (ASPIRIN (ACETYLSALICYLIC ACID) [Concomitant]
  5. CALCIUM CARBONATE (CALCIUM CARBONATE) [Concomitant]
  6. VITAMINS [Concomitant]
  7. HORMONES AND RELATED AGENTS [Concomitant]

REACTIONS (6)
  - ABDOMINAL PAIN UPPER [None]
  - BLOOD GLUCOSE ABNORMAL [None]
  - DIARRHOEA [None]
  - NAUSEA [None]
  - NEUROPATHY [None]
  - VOMITING [None]
